FAERS Safety Report 10337106 (Version 1)
Quarter: 2014Q3

REPORT INFORMATION
  Report Type: Spontaneous
  Country: QA (occurrence: QA)
  Receive Date: 20140723
  Receipt Date: 20140723
  Transmission Date: 20150326
  Serious: Yes (Death)
  Sender: FDA-Public Use
  Company Number: QA-009507513-1407QAT009421

PATIENT
  Age: 84 Year
  Sex: Male

DRUGS (1)
  1. CASPOFUNGIN ACETATE [Suspect]
     Active Substance: CASPOFUNGIN ACETATE
     Indication: FUNGAL INFECTION
     Route: 065

REACTIONS (2)
  - Drug resistance [Fatal]
  - Fungaemia [Fatal]

NARRATIVE: CASE EVENT DATE: 2008
